FAERS Safety Report 9734012 (Version 1)
Quarter: 2013Q4

REPORT INFORMATION
  Report Type: Spontaneous
  Country: RO (occurrence: RO)
  Receive Date: 20131205
  Receipt Date: 20131205
  Transmission Date: 20140711
  Serious: Yes (Hospitalization, Other)
  Sender: FDA-Public Use
  Company Number: RO-ACTAVIS-2013-21813

PATIENT
  Age: 38 Year
  Sex: Female

DRUGS (9)
  1. MYCOPHENOLATE MOFETIL (UNKNOWN) [Suspect]
     Indication: SYSTEMIC LUPUS ERYTHEMATOSUS
     Dosage: 2 G, DAILY
     Route: 048
  2. MYCOPHENOLATE MOFETIL (UNKNOWN) [Suspect]
     Indication: LUPUS NEPHRITIS
  3. CYCLOPHOSPHAMIDE (UNKNOWN) [Suspect]
     Indication: LUPUS NEPHRITIS
     Dosage: MONTHLY PULSES FOR 6 MONTHS
     Route: 065
     Dates: start: 200801
  4. PREDNISONE (UNKNOWN) [Suspect]
     Indication: SYSTEMIC LUPUS ERYTHEMATOSUS
     Dosage: 10 MG, DAILY
     Route: 065
  5. PREDNISONE (UNKNOWN) [Suspect]
     Indication: LUPUS NEPHRITIS
     Dosage: UNK
     Route: 065
     Dates: start: 1994
  6. AZATHIOPRINE (UNKNOWN) [Suspect]
     Indication: SYSTEMIC LUPUS ERYTHEMATOSUS
     Dosage: UNK
     Route: 065
     Dates: start: 2005
  7. AZATHIOPRINE (UNKNOWN) [Suspect]
     Indication: LUPUS NEPHRITIS
  8. METHYLPREDNISOLONE (UNKNOWN) [Suspect]
     Indication: SYSTEMIC LUPUS ERYTHEMATOSUS
     Dosage: 1 G, DAILY
     Route: 042
  9. METHYLPREDNISOLONE (UNKNOWN) [Suspect]
     Indication: LUPUS NEPHRITIS
     Dosage: MONTHLY PULSES FOR 6 MONTHS

REACTIONS (2)
  - Disseminated tuberculosis [Recovered/Resolved]
  - Joint tuberculosis [Recovered/Resolved]
